FAERS Safety Report 11868523 (Version 1)
Quarter: 2015Q4

REPORT INFORMATION
  Report Type: Spontaneous
  Country: US (occurrence: US)
  Receive Date: 20151225
  Receipt Date: 20151225
  Transmission Date: 20160305
  Serious: No
  Sender: FDA-Public Use
  Company Number: US-DRREDDYS-USA/USA/15/0047186

PATIENT
  Age: 55 Year
  Sex: Male
  Weight: 123.3 kg

DRUGS (1)
  1. HABITROL [Suspect]
     Active Substance: NICOTINE
     Indication: SMOKING CESSATION THERAPY
     Route: 061
     Dates: start: 20150402

REACTIONS (1)
  - Labyrinthitis [Recovering/Resolving]

NARRATIVE: CASE EVENT DATE: 20150402
